FAERS Safety Report 6779820-4 (Version None)
Quarter: 2010Q2

REPORT INFORMATION
  Report Type: 
  Country: None (occurrence: None)
  Receive Date: 20100618
  Receipt Date: 20100607
  Transmission Date: 20101027
  Serious: Yes (Other)
  Sender: FDA-Public Use
  Company Number: US-PFIZER INC-2010071383

PATIENT
  Sex: Male
  Weight: 74.83 kg

DRUGS (8)
  1. CHANTIX [Suspect]
     Indication: SMOKING CESSATION THERAPY
     Dosage: 0.5 MG, 2X/DAY
     Route: 048
     Dates: start: 20100531
  2. TIMOLOL [Concomitant]
     Indication: CARDIAC DISORDER
     Dosage: 50 MG, 1X/DAY
     Route: 048
  3. ATIVAN [Concomitant]
     Indication: DEPRESSION
     Dosage: UNK
  4. ATIVAN [Concomitant]
     Indication: ANXIETY
  5. WELLBUTRIN [Concomitant]
     Indication: DEPRESSION
     Dosage: 300 MG, 1X/DAY
  6. WELLBUTRIN [Concomitant]
     Indication: ANXIETY
  7. DEPAKOTE [Concomitant]
     Indication: DEPRESSION
     Dosage: 500 MG, 1X/DAY
  8. DEPAKOTE [Concomitant]
     Indication: ANXIETY

REACTIONS (4)
  - ANXIETY [None]
  - DEPRESSION [None]
  - SLEEP DISORDER [None]
  - SUICIDAL IDEATION [None]
